FAERS Safety Report 5523448-0 (Version None)
Quarter: 2007Q4

REPORT INFORMATION
  Report Type: 
  Country: None (occurrence: None)
  Receive Date: 20071121
  Receipt Date: 20071116
  Transmission Date: 20080405
  Serious: Yes (Death)
  Sender: FDA-Public Use
  Company Number: GB-AVENTIS-200717121GDDC

PATIENT
  Age: 85 Year
  Sex: Female

DRUGS (2)
  1. LANTUS [Suspect]
     Dates: start: 20070602, end: 20070602
  2. OPTICLIK (INSULIN INJECTION PEN) [Suspect]

REACTIONS (7)
  - CARDIAC ARREST [None]
  - FEELING HOT [None]
  - FLUSHING [None]
  - HYPOGLYCAEMIA [None]
  - OVERDOSE [None]
  - PHARMACEUTICAL PRODUCT COMPLAINT [None]
  - SOMNOLENCE [None]
